FAERS Safety Report 12288522 (Version 2)
Quarter: 2018Q1

REPORT INFORMATION
  Report Type: Report from Study
  Country: GB (occurrence: GB)
  Receive Date: 20160420
  Receipt Date: 20180314
  Transmission Date: 20180508
  Serious: Yes (Hospitalization)
  Sender: FDA-Public Use
  Company Number: GB-ROCHE-1744102

PATIENT
  Sex: Female

DRUGS (2)
  1. ISOTARD [Concomitant]
  2. TOCILIZUMAB. [Suspect]
     Active Substance: TOCILIZUMAB
     Indication: RHEUMATOID ARTHRITIS
     Route: 058
     Dates: start: 20150215

REACTIONS (2)
  - Angina pectoris [Recovered/Resolved]
  - Angina unstable [Recovered/Resolved]

NARRATIVE: CASE EVENT DATE: 20150611
